FAERS Safety Report 7579697-3 (Version None)
Quarter: 2011Q2

REPORT INFORMATION
  Report Type: 
  Country: None (occurrence: None)
  Receive Date: 20110629
  Receipt Date: 20110621
  Transmission Date: 20111010
  Serious: Yes (Other)
  Sender: FDA-Public Use
  Company Number: US-MYLANLABS-2011S1012963

PATIENT
  Age: 32 Year
  Sex: Female
  Weight: 45.36 kg

DRUGS (1)
  1. AMNESTEEM [Suspect]
     Dates: start: 20110501, end: 20110501

REACTIONS (1)
  - DRUG EXPOSURE DURING PREGNANCY [None]
